FAERS Safety Report 6489131-2 (Version None)
Quarter: 2009Q4

REPORT INFORMATION
  Report Type: 
  Country: None (occurrence: None)
  Receive Date: 20091210
  Receipt Date: 20091126
  Transmission Date: 20100525
  Serious: Yes (Death)
  Sender: FDA-Public Use
  Company Number: GR-GENENTECH-295547

PATIENT

DRUGS (1)
  1. RITUXIMAB [Suspect]
     Indication: DRUG USE FOR UNKNOWN INDICATION
     Route: 065

REACTIONS (4)
  - ACUTE HEPATIC FAILURE [None]
  - HEPATITIS [None]
  - TRANSAMINASES ABNORMAL [None]
  - VIRAL LOAD INCREASED [None]
